FAERS Safety Report 23224305 (Version 2)
Quarter: 2024Q2

REPORT INFORMATION
  Report Type: Spontaneous
  Country: KR (occurrence: KR)
  Receive Date: 20231124
  Receipt Date: 20240409
  Transmission Date: 20240716
  Serious: Yes (Other)
  Sender: FDA-Public Use
  Company Number: KR-002147023-NVSC2023KR235769

PATIENT
  Sex: Female

DRUGS (2)
  1. CIPROFLOXACIN HYDROCHLORIDE\HYDROCORTISONE [Suspect]
     Active Substance: CIPROFLOXACIN HYDROCHLORIDE\HYDROCORTISONE
     Indication: Otitis externa
     Dosage: 10 DF (OTIC ROUTE)
     Route: 065
     Dates: start: 20231025
  2. CIPROFLOXACIN HYDROCHLORIDE\HYDROCORTISONE [Suspect]
     Active Substance: CIPROFLOXACIN HYDROCHLORIDE\HYDROCORTISONE
     Dosage: UNK (BOTH EARS)
     Route: 047
     Dates: start: 20231025

REACTIONS (6)
  - Hypoacusis [Unknown]
  - Foreign body in ear [Unknown]
  - Ear haemorrhage [Unknown]
  - Hypoaesthesia [Unknown]
  - Ear pain [Not Recovered/Not Resolved]
  - Ear discomfort [Not Recovered/Not Resolved]

NARRATIVE: CASE EVENT DATE: 20231029
